FAERS Safety Report 7211436-8 (Version None)
Quarter: 2010Q4

REPORT INFORMATION
  Report Type: 
  Country: None (occurrence: None)
  Receive Date: 20101223
  Receipt Date: 20101214
  Transmission Date: 20110411
  Serious: Yes (Hospitalization)
  Sender: FDA-Public Use
  Company Number: 023739

PATIENT
  Sex: Female
  Weight: 72 kg

DRUGS (1)
  1. KEPPRA [Suspect]
     Dosage: (250 MG BID), (500 MG BID, 2 TABLETS TWICE DAILY)
     Dates: start: 20101130

REACTIONS (4)
  - BALANCE DISORDER [None]
  - MEMORY IMPAIRMENT [None]
  - MYALGIA [None]
  - THROMBOCYTOPENIA [None]
